FAERS Safety Report 7978421-X (Version None)
Quarter: 2011Q4

REPORT INFORMATION
  Report Type: 
  Country: None (occurrence: None)
  Receive Date: 20111214
  Receipt Date: 20111205
  Transmission Date: 20120403
  Serious: Yes (Death)
  Sender: FDA-Public Use
  Company Number: JP-JNJFOC-20111111986

PATIENT
  Sex: Male

DRUGS (4)
  1. METHOTREXATE [Concomitant]
     Route: 048
  2. INSULIN [Concomitant]
     Indication: DIABETES MELLITUS
  3. STELARA [Suspect]
     Indication: PSORIASIS
     Route: 058
     Dates: start: 20110810, end: 20110907
  4. RHEUMATREX [Concomitant]
     Route: 048

REACTIONS (3)
  - MULTI-ORGAN FAILURE [None]
  - DRUG INEFFECTIVE [None]
  - INTERSTITIAL LUNG DISEASE [None]
